FAERS Safety Report 10493792 (Version 1)
Quarter: 2014Q4

REPORT INFORMATION
  Report Type: Spontaneous
  Country: GB (occurrence: GB)
  Receive Date: 20141002
  Receipt Date: 20141002
  Transmission Date: 20150528
  Serious: Yes (Death, Hospitalization)
  Sender: FDA-Public Use
  Company Number: PHHY2014GB126720

PATIENT
  Age: 73 Year
  Sex: Female

DRUGS (2)
  1. VALPROIC ACID. [Suspect]
     Active Substance: VALPROIC ACID
     Indication: SEIZURE
     Dosage: 200 MG, UNK
  2. VEMURAFENIB [Suspect]
     Active Substance: VEMURAFENIB
     Indication: METASTATIC MALIGNANT MELANOMA
     Dosage: 960 MG, BID

REACTIONS (18)
  - Skin erosion [Recovering/Resolving]
  - Skin disorder [Recovering/Resolving]
  - Stomatitis [Recovering/Resolving]
  - Rash [Recovering/Resolving]
  - Melaena [Unknown]
  - Toxic epidermal necrolysis [Recovering/Resolving]
  - Pyrexia [Recovering/Resolving]
  - Hypotension [Recovering/Resolving]
  - Tachycardia [Recovering/Resolving]
  - Conjunctival disorder [Recovering/Resolving]
  - Dermatitis [Recovering/Resolving]
  - Vulvovaginal erythema [Recovering/Resolving]
  - Pneumonia [Unknown]
  - Skin necrosis [Recovering/Resolving]
  - Erythema [Recovering/Resolving]
  - Skin lesion [Recovering/Resolving]
  - Blister [Recovering/Resolving]
  - Multi-organ failure [Fatal]
